FAERS Safety Report 8568726-6 (Version None)
Quarter: 2012Q3

REPORT INFORMATION
  Report Type: 
  Country: None (occurrence: None)
  Receive Date: 20120803
  Receipt Date: 20120117
  Transmission Date: 20120928
  Serious: No
  Sender: FDA-Public Use
  Company Number: US-ABBOTT-12P-163-0894262-00

PATIENT
  Sex: Female
  Weight: 69.916 kg

DRUGS (4)
  1. LIPITOR [Concomitant]
     Indication: PRODUCT USED FOR UNKNOWN INDICATION
     Route: 048
  2. ASPIRIN [Concomitant]
     Indication: PRODUCT USED FOR UNKNOWN INDICATION
     Route: 048
  3. RAMIPRIL [Concomitant]
     Indication: PRODUCT USED FOR UNKNOWN INDICATION
     Route: 048
  4. NIASPAN [Suspect]
     Indication: LIPOPROTEIN (A) ABNORMAL
     Dosage: AT BEDTIME
     Route: 048
     Dates: start: 20111101

REACTIONS (3)
  - PARAESTHESIA [None]
  - NIGHT SWEATS [None]
  - PRURITUS [None]
